FAERS Safety Report 13899960 (Version 1)
Quarter: 2017Q3

REPORT INFORMATION
  Report Type: Spontaneous
  Country: US (occurrence: None)
  Receive Date: 20170824
  Receipt Date: 20170824
  Transmission Date: 20171127
  Serious: Yes (Hospitalization)
  Sender: FDA-Public Use
  Company Number: None

PATIENT
  Age: 61 Year
  Sex: Female

DRUGS (8)
  1. ZOFRAN [Concomitant]
     Active Substance: ONDANSETRON HYDROCHLORIDE
  2. MAXALT [Concomitant]
     Active Substance: RIZATRIPTAN BENZOATE
  3. NORCO [Concomitant]
     Active Substance: ACETAMINOPHEN\HYDROCODONE BITARTRATE
  4. LEVOTHYROXINE. [Concomitant]
     Active Substance: LEVOTHYROXINE
  5. TASIGNA [Suspect]
     Active Substance: NILOTINIB
     Indication: CHRONIC MYELOID LEUKAEMIA
     Route: 048
     Dates: start: 20170607
  6. ATIVAN [Concomitant]
     Active Substance: LORAZEPAM
  7. LASIX [Concomitant]
     Active Substance: FUROSEMIDE
  8. KLORCON [Concomitant]

REACTIONS (6)
  - Drug dose omission [None]
  - Hospitalisation [None]
  - Nausea [None]
  - Bone pain [None]
  - Cancer pain [None]
  - Abdominal pain [None]

NARRATIVE: CASE EVENT DATE: 20170815
